FAERS Safety Report 13108809 (Version 2)
Quarter: 2017Q1

REPORT INFORMATION
  Report Type: Spontaneous
  Country: US (occurrence: US)
  Receive Date: 20170112
  Receipt Date: 20170303
  Transmission Date: 20170428
  Serious: Yes (Hospitalization)
  Sender: FDA-Public Use
  Company Number: US-SA-2017SA003503

PATIENT
  Age: 66 Year
  Sex: Male
  Weight: 95.25 kg

DRUGS (2)
  1. SOLOSTAR [Concomitant]
     Active Substance: DEVICE
     Indication: DIABETES MELLITUS
     Dates: start: 1998
  2. LANTUS SOLOSTAR [Suspect]
     Active Substance: INSULIN GLARGINE
     Indication: DIABETES MELLITUS
     Dosage: DOSE- 40 TO 50 UNITS DAILY
     Route: 065
     Dates: start: 1998

REACTIONS (2)
  - Cerebrovascular accident [Recovered/Resolved with Sequelae]
  - Speech disorder [Unknown]

NARRATIVE: CASE EVENT DATE: 20120113
